FAERS Safety Report 9423698 (Version 2)
Quarter: 2013Q3

REPORT INFORMATION
  Report Type: Spontaneous
  Country: US (occurrence: US)
  Receive Date: 20130727
  Receipt Date: 20130731
  Transmission Date: 20140515
  Serious: Yes (Hospitalization)
  Sender: FDA-Public Use
  Company Number: PHHY2013US077644

PATIENT
  Age: 7 Year
  Sex: Female

DRUGS (5)
  1. VALPROIC ACID [Suspect]
     Indication: EPILEPSY
     Dosage: UNK UKN, UNK
  2. VALPROIC ACID [Suspect]
     Dosage: 250 MG/5 ML
  3. VALPROIC ACID [Suspect]
     Dosage: 200 MG/1 ML
  4. CLONAZEPAM [Concomitant]
     Indication: EPILEPSY
     Dosage: UNK UKN, UNK
  5. SULTHIAME [Concomitant]
     Indication: EPILEPSY
     Dosage: UNK UKN, UNK

REACTIONS (14)
  - Toxicity to various agents [Recovered/Resolved]
  - General physical health deterioration [Recovered/Resolved]
  - Respiratory acidosis [Recovered/Resolved]
  - Oedema peripheral [Recovered/Resolved]
  - Metabolic acidosis [Recovered/Resolved]
  - Unresponsive to stimuli [Recovered/Resolved]
  - C-reactive protein increased [Recovered/Resolved]
  - Hypoalbuminaemia [Recovered/Resolved]
  - Thrombocytopenia [Recovered/Resolved]
  - Somnolence [Recovered/Resolved]
  - Hypoproteinaemia [Recovered/Resolved]
  - Blood pressure decreased [Recovered/Resolved]
  - Dyspnoea [Recovered/Resolved]
  - Anticonvulsant drug level increased [Recovered/Resolved]
